FAERS Safety Report 5488344-6 (Version None)
Quarter: 2007Q4

REPORT INFORMATION
  Report Type: 
  Country: None (occurrence: None)
  Receive Date: 20071017
  Receipt Date: 20071015
  Transmission Date: 20080405
  Serious: Yes (Other)
  Sender: FDA-Public Use
  Company Number: A0688281A

PATIENT
  Sex: Male

DRUGS (1)
  1. WELLBUTRIN [Suspect]
     Indication: DRUG USE FOR UNKNOWN INDICATION
     Route: 065

REACTIONS (6)
  - AMPHETAMINES POSITIVE [None]
  - BLOOD PRESSURE INCREASED [None]
  - CONVULSION [None]
  - INTENTIONAL DRUG MISUSE [None]
  - OVERDOSE [None]
  - TACHYCARDIA [None]
